FAERS Safety Report 7212784-8 (Version None)
Quarter: 2011Q1

REPORT INFORMATION
  Report Type: 
  Country: None (occurrence: None)
  Receive Date: 20110106
  Receipt Date: 20110102
  Transmission Date: 20110831
  Serious: Yes (Other)
  Sender: FDA-Public Use
  Company Number: US-B.I. PHARMACEUTICALS,INC./RIDGEFIELD-2011-BP-00098BP

PATIENT
  Sex: Male

DRUGS (1)
  1. PRADAXA [Suspect]
     Dates: start: 20101201

REACTIONS (3)
  - LUNG INFILTRATION [None]
  - DEEP VEIN THROMBOSIS [None]
  - PULMONARY EMBOLISM [None]
